FAERS Safety Report 9042017 (Version 1)
Quarter: 2013Q1

REPORT INFORMATION
  Report Type: Spontaneous
  Country: US (occurrence: US)
  Receive Date: 20130129
  Receipt Date: 20130129
  Transmission Date: 20140127
  Serious: No
  Sender: FDA-Public Use
  Company Number: US-ABBOTT-12P-163-0906438-00

PATIENT
  Sex: Male

DRUGS (2)
  1. HUMIRA 40 MG/ 0.8 ML PRE-FILLED SYRINGE [Suspect]
     Indication: PRODUCT USED FOR UNKNOWN INDICATION
  2. PEGASYS [Concomitant]
     Indication: LIVER DISORDER

REACTIONS (3)
  - Accidental exposure to product [Recovered/Resolved]
  - Drug administration error [Recovered/Resolved]
  - Wrong drug administered [Recovered/Resolved]
